FAERS Safety Report 13411739 (Version 2)
Quarter: 2017Q4

REPORT INFORMATION
  Report Type: Spontaneous
  Country: US (occurrence: US)
  Receive Date: 20170406
  Receipt Date: 20171123
  Transmission Date: 20180320
  Serious: No
  Sender: FDA-Public Use
  Company Number: US-JNJFOC-20170304306

PATIENT
  Sex: Male

DRUGS (4)
  1. RISPERDAL [Suspect]
     Active Substance: RISPERIDONE
     Indication: AFFECTIVE DISORDER
     Dosage: IN VARYING DOSES OF 0.25 MG, 0.75 MG AND 01 MG OF VARYING FREQUENCY
     Route: 048
     Dates: start: 200703, end: 20071019
  2. RISPERIDONE. [Suspect]
     Active Substance: RISPERIDONE
     Indication: AFFECTIVE DISORDER
     Dosage: IN VARYING DOSES OF 0.75 MG AND 1.25 MG OF VARYING FREQUENCY
     Route: 065
     Dates: start: 20071030, end: 20080814
  3. RISPERDAL [Suspect]
     Active Substance: RISPERIDONE
     Indication: AUTISM SPECTRUM DISORDER
     Dosage: IN VARYING DOSES OF 0.25 MG, 0.75 MG AND 01 MG OF VARYING FREQUENCY
     Route: 048
     Dates: start: 200703, end: 20071019
  4. RISPERIDONE. [Suspect]
     Active Substance: RISPERIDONE
     Indication: AUTISM SPECTRUM DISORDER
     Dosage: IN VARYING DOSES OF 0.75 MG AND 1.25 MG OF VARYING FREQUENCY
     Route: 065
     Dates: start: 20071030, end: 20080814

REACTIONS (2)
  - Emotional disorder [Unknown]
  - Gynaecomastia [Unknown]
